FAERS Safety Report 8803994 (Version 1)
Quarter: 2012Q4

REPORT INFORMATION
  Report Type: 
  Country: CA (occurrence: CA)
  Receive Date: 20120924
  Receipt Date: 20120924
  Transmission Date: 20130627
  Serious: Yes (Other)
  Sender: FDA-Public Use
  Company Number: CA-GLAXOSMITHKLINE-A0993450A

PATIENT
  Sex: Female
  Weight: 72.3 kg

DRUGS (4)
  1. ADVAIR [Suspect]
     Indication: BRONCHITIS CHRONIC
     Dosage: 1PUFF Twice per day
     Route: 055
     Dates: start: 2010
  2. PULMICORT [Concomitant]
  3. ATROVENT [Concomitant]
     Dosage: 2PUFF Four times per day
     Route: 055
  4. VENTOLIN [Concomitant]

REACTIONS (7)
  - Respiratory distress [Not Recovered/Not Resolved]
  - Choking [Unknown]
  - Productive cough [Unknown]
  - Hyperhidrosis [Unknown]
  - Palpitations [Unknown]
  - Dyspnoea [Unknown]
  - Treatment noncompliance [Unknown]
